FAERS Safety Report 7517897-9 (Version None)
Quarter: 2011Q2

REPORT INFORMATION
  Report Type: 
  Country: None (occurrence: None)
  Receive Date: 20110527
  Receipt Date: 20110527
  Transmission Date: 20111010
  Serious: Yes (Life-Threatening, Hospitalization, Other)
  Sender: FDA-Public Use
  Company Number: None

PATIENT
  Age: 69 Year
  Sex: Male
  Weight: 55.3388 kg

DRUGS (2)
  1. STELARA [Suspect]
     Indication: PSORIATIC ARTHROPATHY
     Dosage: EVERY 3 MONTHS SQ
     Route: 058
     Dates: start: 20101230, end: 20110329
  2. STELARA [Suspect]
     Indication: PSORIATIC ARTHROPATHY
     Dosage: EVERY 3 MONTHS SQ
     Route: 058
     Dates: start: 20110330, end: 20110526

REACTIONS (4)
  - PNEUMONIA [None]
  - WEIGHT DECREASED [None]
  - DYSPHAGIA [None]
  - CANDIDIASIS [None]
